FAERS Safety Report 9464562 (Version 3)
Quarter: 2013Q3

REPORT INFORMATION
  Report Type: Spontaneous
  Country: JP (occurrence: JP)
  Receive Date: 20130819
  Receipt Date: 20130903
  Transmission Date: 20140515
  Serious: Yes (Other)
  Sender: FDA-Public Use
  Company Number: JP-JNJFOC-20130806894

PATIENT
  Age: 7 Decade
  Sex: Male

DRUGS (1)
  1. TRAMCET [Suspect]
     Indication: PAIN
     Dosage: 2 DOSES 1 PER DAY
     Route: 048

REACTIONS (2)
  - Ileus [Unknown]
  - Nausea [Unknown]
